FAERS Safety Report 4660927-2 (Version None)
Quarter: 2005Q2

REPORT INFORMATION
  Report Type: 
  Country: None (occurrence: None)
  Receive Date: 20050511
  Receipt Date: 20050502
  Transmission Date: 20051028
  Serious: Yes (Other)
  Sender: FDA-Public Use
  Company Number: 214173

PATIENT
  Age: 15 Year
  Sex: Male
  Weight: 32.2 kg

DRUGS (1)
  1. NUTROPIN AQ [Suspect]
     Indication: GROWTH HORMONE DEFICIENCY
     Dosage: 4.2 MG, QD, SUBCUTANEOUS
     Route: 058
     Dates: start: 20030605, end: 20050427

REACTIONS (4)
  - CEREBROVASCULAR ACCIDENT [None]
  - HYPOAESTHESIA [None]
  - MIGRAINE [None]
  - VISION BLURRED [None]
